FAERS Safety Report 5927488-9 (Version None)
Quarter: 2008Q4

REPORT INFORMATION
  Report Type: 
  Country: None (occurrence: None)
  Receive Date: 20081023
  Receipt Date: 20080902
  Transmission Date: 20090506
  Serious: Yes (Other)
  Sender: FDA-Public Use
  Company Number: US-WYE-H05824308

PATIENT
  Sex: Male
  Weight: 83.54 kg

DRUGS (7)
  1. PRISTIQ [Suspect]
     Indication: MAJOR DEPRESSION
     Route: 048
     Dates: start: 20080702, end: 20080701
  2. NEXIUM [Concomitant]
     Indication: GASTROOESOPHAGEAL REFLUX DISEASE
     Route: 048
     Dates: start: 20030915
  3. VICODIN [Concomitant]
     Dosage: UNKNOWN DOSE EVERY SIX HOURS AS NEEDED FOR PAIN
     Route: 048
     Dates: start: 20061001
  4. ENBREL [Concomitant]
     Indication: PSORIATIC ARTHROPATHY
     Dosage: UNKNOWN (WEEKLY INJECTION)
     Route: 065
  5. LORAZEPAM [Concomitant]
     Indication: ANXIETY
     Dosage: .5 MG, ONE TO TWO DAILY
     Route: 055
  6. TEGRETOL [Concomitant]
     Indication: CONVULSION
     Route: 048
  7. CELEBREX [Concomitant]
     Indication: PAIN
     Dosage: 200 MG DAILY AS NEEDED
     Route: 048

REACTIONS (2)
  - PALPITATIONS [None]
  - UNRESPONSIVE TO STIMULI [None]
